FAERS Safety Report 18485741 (Version 1)
Quarter: 2020Q4

REPORT INFORMATION
  Report Type: Report from Study
  Country: None (occurrence: US)
  Receive Date: 20201110
  Receipt Date: 20201110
  Transmission Date: 20210114
  Serious: Yes (Hospitalization, Other)
  Sender: FDA-Public Use
  Company Number: US-ABBVIE-20K-163-3506855-00

PATIENT
  Age: 63 Year
  Sex: Female
  Weight: 53.12 kg

DRUGS (2)
  1. DUOPA [Suspect]
     Active Substance: CARBIDOPA\LEVODOPA
  2. DUOPA [Suspect]
     Active Substance: CARBIDOPA\LEVODOPA
     Indication: PRODUCT USED FOR UNKNOWN INDICATION
     Route: 050
     Dates: start: 20170428, end: 20201011

REACTIONS (13)
  - Device occlusion [Recovered/Resolved]
  - Off label use [Unknown]
  - Gastrointestinal disorder [Unknown]
  - Device dislocation [Recovered/Resolved]
  - Device dislocation [Recovered/Resolved]
  - Device material issue [Unknown]
  - Gastric ulcer [Not Recovered/Not Resolved]
  - Dyspepsia [Unknown]
  - Nausea [Unknown]
  - Abdominal discomfort [Unknown]
  - Duodenogastric reflux [Not Recovered/Not Resolved]
  - Device expulsion [Unknown]
  - Vomiting [Recovered/Resolved]

NARRATIVE: CASE EVENT DATE: 2020
